FAERS Safety Report 5233194-9 (Version None)
Quarter: 2007Q1

REPORT INFORMATION
  Report Type: 
  Country: None (occurrence: None)
  Receive Date: 20070207
  Receipt Date: 20070201
  Transmission Date: 20070707
  Serious: Yes (Hospitalization, Disabling, Other)
  Sender: FDA-Public Use
  Company Number: US-MERCK-0702USA00340

PATIENT
  Age: 74 Year
  Sex: Male

DRUGS (3)
  1. ZETIA [Suspect]
     Indication: BLOOD CHOLESTEROL INCREASED
     Route: 048
     Dates: start: 20040217, end: 20041228
  2. LISINOPRIL [Concomitant]
     Route: 065
  3. IODINE [Concomitant]
     Route: 065

REACTIONS (1)
  - PEMPHIGOID [None]
